FAERS Safety Report 7000028-1 (Version None)
Quarter: 2010Q3

REPORT INFORMATION
  Report Type: 
  Country: None (occurrence: None)
  Receive Date: 20100920
  Receipt Date: 20070716
  Transmission Date: 20110219
  Serious: Yes (Other)
  Sender: FDA-Public Use
  Company Number: US-ASTRAZENECA-2006UW24193

PATIENT
  Sex: Male
  Weight: 77.1 kg

DRUGS (14)
  1. SEROQUEL [Suspect]
     Indication: DEPRESSION
     Dosage: 2 TABL. AT BEDTIME
     Route: 048
     Dates: start: 20040601
  2. SEROQUEL [Suspect]
     Dosage: 200 - 600 MG AT NIGHT
     Route: 048
     Dates: start: 20040603
  3. THORAZINE [Concomitant]
  4. ZYPREXA [Concomitant]
  5. BUSPIRONE HCL [Concomitant]
     Route: 048
     Dates: start: 20040603
  6. PAROXETINE [Concomitant]
     Route: 048
     Dates: start: 20040603
  7. METOPROLOL [Concomitant]
     Route: 048
     Dates: start: 20051204
  8. CYMBALTA [Concomitant]
     Route: 048
     Dates: start: 20051204
  9. ABILIFY [Concomitant]
     Dosage: 15 - 45 MG DAILY
     Route: 048
     Dates: start: 20051204
  10. LISINOPRIL [Concomitant]
     Dosage: 5 - 10 MG DAILY
     Route: 048
     Dates: start: 20031013
  11. LIBRIUM [Concomitant]
     Dosage: 20 - 100 MG AS REQUIRED
     Dates: start: 20051204
  12. DESYREL [Concomitant]
     Route: 062
     Dates: start: 20060515
  13. LOPRESSOR [Concomitant]
     Route: 048
     Dates: start: 20060515
  14. LASIX [Concomitant]
     Route: 048
     Dates: start: 20060515

REACTIONS (1)
  - PANCREATITIS [None]
